FAERS Safety Report 8221111-9 (Version None)
Quarter: 2012Q1

REPORT INFORMATION
  Report Type: 
  Country: None (occurrence: None)
  Receive Date: 20120320
  Receipt Date: 20120311
  Transmission Date: 20120608
  Serious: Yes (Other)
  Sender: FDA-Public Use
  Company Number: RU-SANOFI-AVENTIS-2012SA016233

PATIENT
  Sex: Female

DRUGS (4)
  1. PLAVIX [Suspect]
     Indication: THROMBOSIS PROPHYLAXIS
     Route: 048
     Dates: start: 20110601
  2. ASPIRIN [Suspect]
     Indication: THROMBOSIS PROPHYLAXIS
     Route: 048
     Dates: start: 20110601
  3. PLAVIX [Suspect]
     Route: 048
     Dates: start: 20110601
  4. ASPIRIN [Suspect]
     Route: 048
     Dates: start: 20110601

REACTIONS (2)
  - EPISTAXIS [None]
  - FRACTURE DELAYED UNION [None]
